FAERS Safety Report 9448579 (Version 1)
Quarter: 2013Q3

REPORT INFORMATION
  Report Type: Spontaneous
  Country: US (occurrence: US)
  Receive Date: 20130808
  Receipt Date: 20130808
  Transmission Date: 20140515
  Serious: No
  Sender: FDA-Public Use
  Company Number: US-BAUSCH-BL-2012-001489

PATIENT
  Age: 76 Year
  Sex: Female

DRUGS (1)
  1. CROMOLYN SODIUM NASAL SOLUTION USP [Suspect]
     Indication: PRODUCT USED FOR UNKNOWN INDICATION
     Dosage: NASAL
     Route: 045
     Dates: start: 201209, end: 201209

REACTIONS (2)
  - Erythema [Unknown]
  - Pruritus [Unknown]
